FAERS Safety Report 11687408 (Version 1)
Quarter: 2015Q4

REPORT INFORMATION
  Report Type: Report from Study
  Country: PL (occurrence: PL)
  Receive Date: 20151030
  Receipt Date: 20151030
  Transmission Date: 20160304
  Serious: Yes (Hospitalization, Other)
  Sender: FDA-Public Use
  Company Number: PL-BAXALTA-2014BAX071737

PATIENT
  Age: 4 Year
  Sex: Male
  Weight: 17 kg

DRUGS (4)
  1. METOPROLOL [Concomitant]
     Active Substance: METOPROLOL
     Indication: HYPERTENSION
     Dosage: 12.5 MG, 1X A DAY
     Route: 048
     Dates: start: 201401
  2. FEIBA NF [Suspect]
     Active Substance: ANTI-INHIBITOR COAGULANT COMPLEX
     Indication: FACTOR VIII DEFICIENCY
     Dosage: UNK
     Dates: start: 20141127, end: 20141127
  3. FEIBA NF [Suspect]
     Active Substance: ANTI-INHIBITOR COAGULANT COMPLEX
     Indication: PROPHYLAXIS
     Dosage: 1500 IU, 1X A DAY
     Route: 042
     Dates: start: 20141127, end: 20141127
  4. ENALAPRIL [Concomitant]
     Active Substance: ENALAPRIL
     Indication: HYPERTENSION
     Dosage: 2.5MILLIGRAM2X A DAY
     Route: 048
     Dates: start: 201401

REACTIONS (1)
  - Skin injury [Recovered/Resolved]

NARRATIVE: CASE EVENT DATE: 20141127
